FAERS Safety Report 8704809 (Version 3)
Quarter: 2013Q1

REPORT INFORMATION
  Report Type: Report from Study
  Country: JP (occurrence: JP)
  Receive Date: 20120803
  Receipt Date: 20130212
  Transmission Date: 20140127
  Serious: Yes (Other)
  Sender: FDA-Public Use
  Company Number: JP-009507513-1207JPN012609

PATIENT
  Age: 78 Year
  Sex: Female
  Weight: 42 kg

DRUGS (5)
  1. PEGINTRON [Suspect]
     Indication: CHRONIC HEPATITIS C
     Dosage: 1.0 MICROGRAM PER KILOGRAM, QW
     Route: 058
     Dates: start: 20120509, end: 20120530
  2. REBETOL [Suspect]
     Indication: CHRONIC HEPATITIS C
     Dosage: 400 MG, QD
     Route: 048
     Dates: start: 20120509, end: 20120606
  3. TELAVIC [Suspect]
     Indication: CHRONIC HEPATITIS C
     Dosage: 1500 MG, QD
     Route: 048
     Dates: start: 20120509, end: 20120606
  4. [COMPOSITION UNSPECIFIED] [Concomitant]
     Dosage: 400 ML/DAY, AS NEEDED
     Route: 051
     Dates: start: 20120613, end: 20120613
  5. [COMPOSITION UNSPECIFIED] [Concomitant]
     Dosage: 400 ML/DAY, AS NEEDED
     Route: 051
     Dates: start: 20120620, end: 20120620

REACTIONS (2)
  - Anaemia [Recovered/Resolved]
  - Anaemia [Recovered/Resolved]
